FAERS Safety Report 7237004-X (Version None)
Quarter: 2011Q1

REPORT INFORMATION
  Report Type: 
  Country: None (occurrence: None)
  Receive Date: 20110121
  Receipt Date: 20110112
  Transmission Date: 20110831
  Serious: No
  Sender: FDA-Public Use
  Company Number: US-BIOGENIDEC-2011BI001488

PATIENT
  Sex: Female

DRUGS (1)
  1. TYSABRI [Suspect]
     Indication: MULTIPLE SCLEROSIS
     Route: 042
     Dates: start: 20080822

REACTIONS (7)
  - FALL [None]
  - FRUSTRATION [None]
  - POOR VENOUS ACCESS [None]
  - UPPER LIMB FRACTURE [None]
  - ARTHROPATHY [None]
  - HYPOAESTHESIA [None]
  - CYSTITIS [None]
